FAERS Safety Report 12516991 (Version 1)
Quarter: 2016Q2

REPORT INFORMATION
  Report Type: Spontaneous
  Country: FR (occurrence: FR)
  Receive Date: 20160630
  Receipt Date: 20160630
  Transmission Date: 20160815
  Serious: Yes (Hospitalization)
  Sender: FDA-Public Use
  Company Number: FR-IMPAX LABORATORIES, INC-2016-IPXL-00662

PATIENT
  Age: 33 Year
  Sex: Female

DRUGS (3)
  1. BACLOFEN. [Suspect]
     Active Substance: BACLOFEN
     Dosage: UPTO 560 MG, DAILY
     Route: 065
  2. BACLOFEN. [Suspect]
     Active Substance: BACLOFEN
     Indication: ALCOHOLISM
     Dosage: UNK
     Route: 065
  3. BACLOFEN. [Suspect]
     Active Substance: BACLOFEN
     Dosage: 60 MG, DAILY
     Route: 065

REACTIONS (10)
  - Skin discolouration [Recovered/Resolved]
  - Withdrawal syndrome [Recovered/Resolved]
  - Rhabdomyolysis [Recovered/Resolved]
  - Overdose [Recovered/Resolved]
  - Tremor [Recovered/Resolved]
  - Hyperthermia [Recovered/Resolved]
  - Hypertonia [Recovered/Resolved]
  - Off label use [Unknown]
  - Gastroenteritis [Unknown]
  - Self-medication [Unknown]
